FAERS Safety Report 5952970-8 (Version None)
Quarter: 2008Q4

REPORT INFORMATION
  Report Type: 
  Country: None (occurrence: None)
  Receive Date: 20081114
  Receipt Date: 20081104
  Transmission Date: 20090506
  Serious: Yes (Other)
  Sender: FDA-Public Use
  Company Number: IL-BAYER-200829983GPV

PATIENT
  Age: 58 Year
  Sex: Male

DRUGS (6)
  1. CIPROXAN [Suspect]
     Indication: DRUG USE FOR UNKNOWN INDICATION
     Route: 065
     Dates: start: 20081008
  2. ASPIRIN [Suspect]
     Indication: DRUG USE FOR UNKNOWN INDICATION
     Route: 065
     Dates: start: 20081002
  3. CEFAZOLIN [Suspect]
     Indication: DRUG USE FOR UNKNOWN INDICATION
     Route: 065
     Dates: start: 20081006
  4. AMOXICILLIN [Suspect]
     Indication: DRUG USE FOR UNKNOWN INDICATION
     Route: 065
     Dates: start: 20081008
  5. CLEXANE [Suspect]
     Indication: DRUG USE FOR UNKNOWN INDICATION
     Route: 065
     Dates: start: 20081002
  6. ENTEZAVIR [Suspect]
     Indication: HEPATITIS B
     Route: 048
     Dates: start: 20080128, end: 20081004

REACTIONS (3)
  - ARTERIAL BYPASS OPERATION [None]
  - HAEMATURIA [None]
  - HAEMOLYTIC ANAEMIA [None]
